FAERS Safety Report 9514977 (Version 1)
Quarter: 2013Q1

REPORT INFORMATION
  Report Type: Spontaneous
  Country: US (occurrence: None)
  Receive Date: 20130305
  Receipt Date: 20130305
  Transmission Date: 20140127
  Serious: Yes (Other)
  Sender: FDA-Public Use
  Company Number: 163-21880-12122954

PATIENT
  Age: 61 Year
  Sex: Female

DRUGS (5)
  1. REVLIMID [Suspect]
     Indication: PLASMA CELL MYELOMA
     Route: 048
  2. DEXMETHASONE (DEXAMETHASONE) [Concomitant]
  3. AMLODIPINE [Concomitant]
  4. LISINOPRIL (LISINOPRIL) [Concomitant]
  5. METOPROLOL (METOPROLOL) [Concomitant]

REACTIONS (3)
  - Blister [None]
  - Neuropathy peripheral [None]
  - Headache [None]
